FAERS Safety Report 13290271 (Version 1)
Quarter: 2017Q1

REPORT INFORMATION
  Report Type: Spontaneous
  Country: US (occurrence: US)
  Receive Date: 20170302
  Receipt Date: 20170302
  Transmission Date: 20170428
  Serious: No
  Sender: FDA-Public Use
  Company Number: US-TEVA-738820ACC

PATIENT
  Age: 18 Year
  Sex: Female
  Weight: 56 kg

DRUGS (1)
  1. PLAN B ONE-STEP [Suspect]
     Active Substance: LEVONORGESTREL
     Indication: POST COITAL CONTRACEPTION
     Dates: start: 20161219, end: 20161219

REACTIONS (4)
  - Dysmenorrhoea [Not Recovered/Not Resolved]
  - Menorrhagia [Recovered/Resolved]
  - Menstruation delayed [Not Recovered/Not Resolved]
  - Hypomenorrhoea [Not Recovered/Not Resolved]

NARRATIVE: CASE EVENT DATE: 20170103
